FAERS Safety Report 8506212-X (Version None)
Quarter: 2012Q3

REPORT INFORMATION
  Report Type: 
  Country: None (occurrence: None)
  Receive Date: 20120712
  Receipt Date: 20120703
  Transmission Date: 20120928
  Serious: Yes (Death)
  Sender: FDA-Public Use
  Company Number: DE-ROCHE-1082933

PATIENT
  Sex: Male
  Weight: 127 kg

DRUGS (3)
  1. XELODA [Suspect]
     Indication: RECTAL CANCER
     Route: 048
     Dates: start: 20110310, end: 20110407
  2. OXALIPLATIN [Suspect]
     Indication: RECTAL CANCER
     Dosage: ACTUAL DOSE: 127MG, LAST DOSE: 31 MAR 2011
     Route: 042
     Dates: start: 20110310, end: 20110407
  3. ACC 100 [Concomitant]
     Route: 048

REACTIONS (1)
  - RESPIRATORY FAILURE [None]
